FAERS Safety Report 4400969-5 (Version None)
Quarter: 2004Q3

REPORT INFORMATION
  Report Type: 
  Country: None (occurrence: None)
  Receive Date: 20040907
  Receipt Date: 20030828
  Transmission Date: 20050211
  Serious: No
  Sender: FDA-Public Use
  Company Number: US-BRISTOL-MYERS SQUIBB COMPANY-12368692

PATIENT
  Age: 83 Year
  Sex: Female
  Weight: 68 kg

DRUGS (3)
  1. WARFARIN SODIUM [Suspect]
     Indication: THROMBOSIS
     Dosage: DOSAGE: 2.5MG AND 5MG ALTERNATING DAILY
     Route: 048
  2. SYNTHROID [Concomitant]
  3. DIGITEK [Concomitant]

REACTIONS (1)
  - DRUG EFFECT DECREASED [None]
